FAERS Safety Report 7415119-0 (Version None)
Quarter: 2011Q2

REPORT INFORMATION
  Report Type: 
  Country: None (occurrence: None)
  Receive Date: 20110414
  Receipt Date: 20110401
  Transmission Date: 20111010
  Serious: Yes (Death)
  Sender: FDA-Public Use
  Company Number: PHHY2011DE29490

PATIENT
  Sex: Female
  Weight: 80 kg

DRUGS (5)
  1. RAMIPRIL [Concomitant]
     Dosage: UNK
     Dates: start: 20101004
  2. BISOPROLOL [Concomitant]
     Dosage: 05 MG DAY
     Dates: start: 20101004
  3. NAVELBINE [Concomitant]
     Dosage: UNK
     Dates: start: 20101006
  4. ZOMETA [Suspect]
     Indication: BONE DISORDER
     Dosage: 04 MG EVERY 4 WEEKS
     Route: 042
     Dates: start: 20101006
  5. TRASTUZUMAB [Concomitant]
     Dosage: 25 MG PER DAY
     Dates: start: 20101006

REACTIONS (1)
  - DEATH [None]
